APPROVED DRUG PRODUCT: POLYETHYLENE GLYCOL 3350
Active Ingredient: POLYETHYLENE GLYCOL 3350
Strength: 17GM/SCOOPFUL
Dosage Form/Route: FOR SOLUTION;ORAL
Application: A079214 | Product #001
Applicant: STRIDES PHARMA INTERNATIONAL AG
Approved: Jan 31, 2013 | RLD: No | RS: No | Type: DISCN